FAERS Safety Report 17129878 (Version 1)
Quarter: 2019Q4

REPORT INFORMATION
  Report Type: Spontaneous
  Country: CA (occurrence: CA)
  Receive Date: 20191209
  Receipt Date: 20191209
  Transmission Date: 20200122
  Serious: Yes (Hospitalization, Other)
  Sender: FDA-Public Use
  Company Number: CA-B.BRAUN MEDICAL INC.-2077619

PATIENT
  Age: 70 Year
  Sex: Female

DRUGS (25)
  1. DILAUDID [Concomitant]
     Active Substance: HYDROMORPHONE HYDROCHLORIDE
  2. PERJETA [Suspect]
     Active Substance: PERTUZUMAB
     Route: 042
  3. DOCETAXEL. [Suspect]
     Active Substance: DOCETAXEL
     Route: 042
  4. DOCETAXEL. [Suspect]
     Active Substance: DOCETAXEL
     Route: 042
  5. SALMON OIL [Concomitant]
     Active Substance: FISH OIL
  6. SYNTHROID [Concomitant]
     Active Substance: LEVOTHYROXINE SODIUM
  7. SODIUM CHLORIDE 0.9% W/V INTRAVENOUS INFUSION BP 0264-9999-10 [Suspect]
     Active Substance: SODIUM CHLORIDE
     Indication: PRODUCT USED FOR UNKNOWN INDICATION
     Route: 042
  8. EPIRUBICIN HYDROCHLORIDE. [Suspect]
     Active Substance: EPIRUBICIN HYDROCHLORIDE
     Route: 042
  9. STEMETIL [Concomitant]
     Active Substance: PROCHLORPERAZINE
  10. ZINCOFAX [Concomitant]
     Active Substance: ZINC OXIDE
  11. DECADRON [Concomitant]
     Active Substance: DEXAMETHASONE
  12. IMOVANE [Concomitant]
     Active Substance: ZOPICLONE
  13. TRASTUZUMAB. [Suspect]
     Active Substance: TRASTUZUMAB
  14. TYLENOL [Concomitant]
     Active Substance: ACETAMINOPHEN
  15. ATIVAN [Concomitant]
     Active Substance: LORAZEPAM
  16. CANESTEN [Concomitant]
     Active Substance: CLOTRIMAZOLE
  17. COLACE [Concomitant]
     Active Substance: DOCUSATE SODIUM
  18. EMEND [Concomitant]
     Active Substance: APREPITANT
  19. TRASTUZUMAB. [Suspect]
     Active Substance: TRASTUZUMAB
     Route: 042
  20. NAPROSYN [Concomitant]
     Active Substance: NAPROXEN
  21. PROCYTOX [Suspect]
     Active Substance: CYCLOPHOSPHAMIDE
     Route: 042
  22. FLUOROURACIL. [Suspect]
     Active Substance: FLUOROURACIL
     Route: 065
  23. GRANISETRON HYDROCHLORIDE. [Concomitant]
     Active Substance: GRANISETRON HYDROCHLORIDE
  24. MOXIFLOXACIN. [Concomitant]
     Active Substance: MOXIFLOXACIN
  25. PERJETA [Suspect]
     Active Substance: PERTUZUMAB
     Route: 042

REACTIONS (1)
  - Febrile neutropenia [Recovered/Resolved]
